FAERS Safety Report 14365801 (Version 1)
Quarter: 2018Q1

REPORT INFORMATION
  Report Type: Spontaneous
  Country: CA (occurrence: CA)
  Receive Date: 20180109
  Receipt Date: 20180109
  Transmission Date: 20180509
  Serious: Yes (Other)
  Sender: FDA-Public Use
  Company Number: CA-CONCORDIA PHARMACEUTICALS INC.-GSH201801-000057

PATIENT
  Age: 43 Year
  Sex: Female

DRUGS (4)
  1. SULFASALAZINE. [Concomitant]
     Active Substance: SULFASALAZINE
  2. SODIUM AUROTHIOMALATE [Suspect]
     Active Substance: GOLD SODIUM THIOMALATE
     Indication: PRODUCT USED FOR UNKNOWN INDICATION
     Route: 065
  3. ENBREL [Suspect]
     Active Substance: ETANERCEPT
     Indication: RHEUMATOID ARTHRITIS
     Route: 058
     Dates: start: 200607, end: 200805
  4. PLAQUENIL [Suspect]
     Active Substance: HYDROXYCHLOROQUINE SULFATE
     Indication: RHEUMATOID ARTHRITIS
     Route: 048

REACTIONS (15)
  - Infection [Unknown]
  - Hypersensitivity [Unknown]
  - Nodule [Unknown]
  - Blindness unilateral [Unknown]
  - Drug intolerance [Unknown]
  - Rheumatoid arthritis [Unknown]
  - C-reactive protein abnormal [Unknown]
  - Fear of disease [Unknown]
  - Red blood cell sedimentation rate abnormal [Unknown]
  - Skin lesion [Unknown]
  - Bone erosion [Unknown]
  - Osteitis [Unknown]
  - Drug ineffective [Unknown]
  - Gait inability [Unknown]
  - Synovitis [Unknown]

NARRATIVE: CASE EVENT DATE: 20160311
